FAERS Safety Report 9276195 (Version 2)
Quarter: 2013Q3

REPORT INFORMATION
  Report Type: Spontaneous
  Country: US (occurrence: None)
  Receive Date: 20130501
  Receipt Date: 20130708
  Transmission Date: 20140515
  Serious: Yes (Other)
  Sender: FDA-Public Use
  Company Number: 2013-145

PATIENT
  Sex: Female

DRUGS (4)
  1. PRIALT [Suspect]
     Indication: PAIN
     Route: 037
  2. FENTANYL [Suspect]
     Indication: PAIN
     Route: 037
  3. BUPIVACAINE HYDROCHLORIDE [Suspect]
     Indication: PAIN
     Route: 037
  4. DILAUDID [Suspect]
     Indication: PAIN
     Route: 037

REACTIONS (10)
  - Spinal fracture [None]
  - Weight decreased [None]
  - Back pain [None]
  - Gait disturbance [None]
  - Pain [None]
  - Device dislocation [None]
  - Osteoporotic fracture [None]
  - Medical device discomfort [None]
  - Osteoporosis [None]
  - Hiatus hernia [None]
